FAERS Safety Report 5908352-8 (Version None)
Quarter: 2008Q4

REPORT INFORMATION
  Report Type: 
  Country: None (occurrence: None)
  Receive Date: 20081002
  Receipt Date: 20081002
  Transmission Date: 20090506
  Serious: No
  Sender: FDA-Public Use
  Company Number: None

PATIENT
  Sex: Female

DRUGS (1)
  1. BANANA BOAT SPORT SUNBLOCK [Suspect]
     Dosage: ONCE A DAY
     Dates: start: 20080918, end: 20080918

REACTIONS (2)
  - PRODUCT QUALITY ISSUE [None]
  - SUNBURN [None]
